FAERS Safety Report 20539058 (Version 1)
Quarter: 2022Q1

REPORT INFORMATION
  Report Type: Spontaneous
  Country: CA (occurrence: CA)
  Receive Date: 20220302
  Receipt Date: 20220302
  Transmission Date: 20220423
  Serious: Yes (Other)
  Sender: FDA-Public Use
  Company Number: CA-JNJFOC-20211044747

PATIENT
  Age: 39 Year
  Sex: Female
  Weight: 68 kg

DRUGS (1)
  1. REMICADE [Suspect]
     Active Substance: INFLIXIMAB
     Indication: Crohn^s disease
     Route: 042

REACTIONS (7)
  - Uveitis [Unknown]
  - Infusion site pain [Unknown]
  - Arthralgia [Unknown]
  - Condition aggravated [Unknown]
  - Fatigue [Unknown]
  - Intentional product use issue [Unknown]
  - Off label use [Unknown]
